FAERS Safety Report 15283624 (Version 1)
Quarter: 2018Q3

REPORT INFORMATION
  Report Type: Spontaneous
  Country: FR (occurrence: FR)
  Receive Date: 20180816
  Receipt Date: 20180816
  Transmission Date: 20181010
  Serious: Yes (Life-Threatening, Other)
  Sender: FDA-Public Use
  Company Number: FR-AUROBINDO-AUR-APL-2018-042370

PATIENT
  Age: 68 Year
  Sex: Female
  Weight: 68 kg

DRUGS (6)
  1. PRAZEPAM [Suspect]
     Active Substance: PRAZEPAM
     Indication: DEPRESSION
     Route: 048
     Dates: end: 20180723
  2. CANDESARTAN. [Suspect]
     Active Substance: CANDESARTAN
     Indication: HYPERTENSION
     Route: 048
     Dates: end: 20180723
  3. VENLAFAXINE [Suspect]
     Active Substance: VENLAFAXINE HYDROCHLORIDE
     Indication: DEPRESSION
     Dosage: 37.5 MILLIGRAM
     Route: 048
     Dates: end: 20180723
  4. LORMETAZEPAM [Suspect]
     Active Substance: LORMETAZEPAM
     Indication: DEPRESSION
     Route: 048
     Dates: end: 20180723
  5. ATORVASTATIN [Suspect]
     Active Substance: ATORVASTATIN
     Indication: DYSLIPIDAEMIA
     Route: 048
     Dates: end: 20180723
  6. LERCANIDIPINE [Suspect]
     Active Substance: LERCANIDIPINE
     Indication: HYPERTENSION
     Route: 048
     Dates: end: 20180723

REACTIONS (4)
  - Electrocardiogram QT prolonged [Recovered/Resolved]
  - Poisoning deliberate [Recovered/Resolved]
  - Vasoplegia syndrome [Recovered/Resolved]
  - Coma [Recovered/Resolved]

NARRATIVE: CASE EVENT DATE: 20180723
